FAERS Safety Report 5006295-8 (Version None)
Quarter: 2006Q2

REPORT INFORMATION
  Report Type: 
  Country: None (occurrence: None)
  Receive Date: 20060519
  Receipt Date: 20060412
  Transmission Date: 20061013
  Serious: No
  Sender: FDA-Public Use
  Company Number: 2006UW06369

PATIENT
  Age: 62 Year
  Sex: Female
  Weight: 59.1 kg

DRUGS (1)
  1. ATENOLOL [Suspect]
     Indication: HYPERTENSION
     Route: 048
     Dates: end: 19990101

REACTIONS (1)
  - ANAPHYLACTIC REACTION [None]
